APPROVED DRUG PRODUCT: SULFINPYRAZONE
Active Ingredient: SULFINPYRAZONE
Strength: 200MG
Dosage Form/Route: CAPSULE;ORAL
Application: A087770 | Product #001
Applicant: IVAX PHARMACEUTICALS INC
Approved: Nov 19, 1982 | RLD: No | RS: No | Type: DISCN